FAERS Safety Report 5703322-7 (Version None)
Quarter: 2008Q2

REPORT INFORMATION
  Report Type: 
  Country: None (occurrence: None)
  Receive Date: 20080411
  Receipt Date: 20080401
  Transmission Date: 20081010
  Serious: Yes (Death)
  Sender: FDA-Public Use
  Company Number: JP-PFIZER INC-2008027461

PATIENT
  Sex: Female

DRUGS (5)
  1. LIPITOR [Suspect]
     Indication: HYPERCHOLESTEROLAEMIA
     Dosage: DAILY DOSE:10MG
     Route: 048
     Dates: start: 20070319, end: 20071221
  2. LIPITOR [Suspect]
     Indication: LIPIDS ABNORMAL
  3. VOGLIBOSE [Suspect]
     Indication: DIABETES MELLITUS
     Dosage: DAILY DOSE:.6MG
     Route: 048
     Dates: start: 20061024, end: 20071221
  4. MOBIC [Suspect]
     Indication: PAIN IN EXTREMITY
     Dosage: TEXT:1(DF)/DAY
     Route: 048
     Dates: start: 20060829, end: 20071221
  5. LENDORMIN [Suspect]
     Indication: INSOMNIA
     Dosage: TEXT:1(DF)/DAY
     Route: 048
     Dates: start: 19970514, end: 20071221

REACTIONS (1)
  - INTERSTITIAL LUNG DISEASE [None]
